FAERS Safety Report 4273211-6 (Version None)
Quarter: 2004Q1

REPORT INFORMATION
  Report Type: 
  Country: None (occurrence: None)
  Receive Date: 20040116
  Receipt Date: 20031230
  Transmission Date: 20041129
  Serious: Yes (Death, Other)
  Sender: FDA-Public Use
  Company Number: PHRM2003FR03443

PATIENT
  Age: 90 Year
  Sex: Female
  Weight: 70 kg

DRUGS (10)
  1. LAMISIL [Suspect]
     Indication: RASH ERYTHEMATOUS
     Dosage: 250 MG, QD
     Route: 048
     Dates: start: 20031129, end: 20031201
  2. DIAMICRON [Concomitant]
     Dosage: UNK, UNK
     Route: 048
  3. HEMIGOXINE NATIVELLE [Concomitant]
     Dosage: UNK, UNK
     Route: 048
  4. FONZYLANE [Concomitant]
     Dosage: UNK, UNK
     Route: 048
  5. CARDIOSOLUPSAN [Concomitant]
     Dosage: UNK, UNK
     Route: 048
  6. CORDARONE [Concomitant]
     Dosage: UNK, UNK
     Route: 048
  7. ZOCOR [Concomitant]
     Dosage: UNK, UNK
     Route: 048
  8. FLAGYL [Concomitant]
     Dosage: UNK, UNK
     Route: 048
  9. RULID [Concomitant]
     Dosage: UNK, UNK
     Route: 048
  10. BETANOL [Concomitant]
     Dosage: UNK, UNK
     Route: 065

REACTIONS (4)
  - ACUTE PULMONARY OEDEMA [None]
  - CIRCULATORY COLLAPSE [None]
  - STEVENS-JOHNSON SYNDROME [None]
  - TOXIC SKIN ERUPTION [None]
